FAERS Safety Report 4618740-8 (Version None)
Quarter: 2005Q1

REPORT INFORMATION
  Report Type: 
  Country: None (occurrence: None)
  Receive Date: 20050323
  Receipt Date: 20050308
  Transmission Date: 20050727
  Serious: Yes (Other)
  Sender: FDA-Public Use
  Company Number: 2005BI003268

PATIENT
  Age: 66 Year
  Sex: Female
  Weight: 95.2554 kg

DRUGS (2)
  1. AVONEX [Suspect]
     Indication: MULTIPLE SCLEROSIS
     Dosage: 30 UG; QE;IM
     Dates: start: 19981001, end: 20020201
  2. AVONEX [Suspect]
     Indication: MULTIPLE SCLEROSIS
     Dates: start: 20050201

REACTIONS (3)
  - BENIGN NEOPLASM OF THYROID GLAND [None]
  - DISEASE RECURRENCE [None]
  - HYPERCALCAEMIA [None]
